FAERS Safety Report 8849695 (Version 1)
Quarter: 2012Q4

REPORT INFORMATION
  Report Type: 
  Country: US (occurrence: US)
  Receive Date: 20121019
  Receipt Date: 20121019
  Transmission Date: 20130627
  Serious: Yes (Other)
  Sender: FDA-Public Use
  Company Number: PHEH2012US020415

PATIENT
  Age: 57 Year
  Sex: Female

DRUGS (1)
  1. GILENYA [Suspect]
     Indication: MULTIPLE SCLEROSIS
     Dosage: 0.5 mg, QD
     Route: 048

REACTIONS (5)
  - Foot fracture [Unknown]
  - Limb crushing injury [Unknown]
  - Fall [Unknown]
  - Multiple sclerosis relapse [Unknown]
  - Asthenia [Unknown]
